FAERS Safety Report 21412822 (Version 1)
Quarter: 2022Q4

REPORT INFORMATION
  Report Type: Spontaneous
  Country: US (occurrence: US)
  Receive Date: 20221005
  Receipt Date: 20221005
  Transmission Date: 20230113
  Serious: No
  Sender: FDA-Public Use
  Company Number: US-ELI_LILLY_AND_COMPANY-US202209005605

PATIENT
  Sex: Female

DRUGS (2)
  1. BEBTELOVIMAB [Suspect]
     Active Substance: BEBTELOVIMAB
     Indication: Pyrexia
     Dosage: UNK UNK, UNKNOWN
     Route: 065
  2. BEBTELOVIMAB [Suspect]
     Active Substance: BEBTELOVIMAB
     Indication: Dyspnoea

REACTIONS (3)
  - Mobility decreased [Recovered/Resolved]
  - Palpitations [Recovered/Resolved]
  - Off label use [Unknown]
